FAERS Safety Report 7414937 (Version 2)
Quarter: 2012Q4

REPORT INFORMATION
  Report Type: 
  Country: US (occurrence: US)
  Receive Date: 20100609
  Receipt Date: 20121107
  Transmission Date: 20130627
  Serious: Yes (Other)
  Sender: FDA-Public Use
  Company Number: PHEH2007US16364

PATIENT
  Sex: Male

DRUGS (1)
  1. AREDIA [Suspect]
     Indication: MULTIPLE MYELOMA
     Dosage: 90 mg, QMO
     Dates: start: 199811

REACTIONS (23)
  - Deep vein thrombosis [Unknown]
  - Depression [Unknown]
  - Paraproteinaemia [Unknown]
  - Tachycardia [Unknown]
  - Chest pain [Unknown]
  - Leukocytosis [Unknown]
  - Respiratory tract congestion [Unknown]
  - Bronchitis [Unknown]
  - Spinal osteoarthritis [Unknown]
  - Stress fracture [Unknown]
  - Tunnel vision [Unknown]
  - Papilloedema [Unknown]
  - Anxiety disorder [Unknown]
  - Intervertebral disc protrusion [Unknown]
  - Arachnoid cyst [Unknown]
  - Insomnia [Unknown]
  - Eye pain [Unknown]
  - Toothache [Unknown]
  - Pain in extremity [Unknown]
  - Arthralgia [Unknown]
  - Decreased appetite [Unknown]
  - Vision blurred [Unknown]
  - Tinnitus [Unknown]
